FAERS Safety Report 19376039 (Version 3)
Quarter: 2023Q1

REPORT INFORMATION
  Report Type: Report from Study
  Country: CO (occurrence: CO)
  Receive Date: 20210604
  Receipt Date: 20230304
  Transmission Date: 20230417
  Serious: Yes (Other)
  Sender: FDA-Public Use
  Company Number: CO-ABBVIE-19K-036-3208227-00

PATIENT
  Sex: Male
  Weight: 51 kg

DRUGS (2)
  1. HUMIRA [Suspect]
     Active Substance: ADALIMUMAB
     Indication: Psoriatic arthropathy
     Route: 058
     Dates: start: 20161019
  2. HUMIRA [Suspect]
     Active Substance: ADALIMUMAB

REACTIONS (13)
  - Cataract [Recovered/Resolved]
  - Cataract [Not Recovered/Not Resolved]
  - Visual impairment [Not Recovered/Not Resolved]
  - Glaucoma [Recovering/Resolving]
  - Blindness [Recovering/Resolving]
  - Tooth extraction [Recovering/Resolving]
  - Vertigo [Recovered/Resolved]
  - Immune system disorder [Not Recovered/Not Resolved]
  - Influenza [Recovered/Resolved]
  - Visual impairment [Recovered/Resolved]
  - Nervous system disorder [Not Recovered/Not Resolved]
  - Ear disorder [Not Recovered/Not Resolved]
  - Vertigo [Not Recovered/Not Resolved]

NARRATIVE: CASE EVENT DATE: 20180101
